FAERS Safety Report 6542327-3 (Version None)
Quarter: 2010Q1

REPORT INFORMATION
  Report Type: 
  Country: None (occurrence: None)
  Receive Date: 20100119
  Receipt Date: 20100107
  Transmission Date: 20100710
  Serious: Yes (Hospitalization)
  Sender: FDA-Public Use
  Company Number: JP-PFIZER INC-2010000927

PATIENT
  Age: 54 Year
  Sex: Male

DRUGS (1)
  1. CHAMPIX [Suspect]
     Dosage: UNK
     Route: 048
     Dates: start: 20091205

REACTIONS (2)
  - INFECTION [None]
  - PYREXIA [None]
